FAERS Safety Report 15212006 (Version 2)
Quarter: 2018Q3

REPORT INFORMATION
  Report Type: Spontaneous
  Country: IT (occurrence: IT)
  Receive Date: 20180730
  Receipt Date: 20180824
  Transmission Date: 20181010
  Serious: Yes (Other)
  Sender: FDA-Public Use
  Company Number: IT-CONCORDIA PHARMACEUTICALS INC.-GSH201807-002668

PATIENT
  Age: 60 Year
  Sex: Female

DRUGS (2)
  1. PLAQUENIL [Suspect]
     Active Substance: HYDROXYCHLOROQUINE SULFATE
     Indication: SJOGREN^S SYNDROME
     Route: 065
  2. PREDNISONE. [Suspect]
     Active Substance: PREDNISONE
     Indication: SJOGREN^S SYNDROME
     Route: 065

REACTIONS (5)
  - Diarrhoea [Unknown]
  - Tachyarrhythmia [Unknown]
  - Drug interaction [Unknown]
  - Chest pain [Unknown]
  - Nausea [Unknown]
